FAERS Safety Report 10081884 (Version 1)
Quarter: 2014Q2

REPORT INFORMATION
  Report Type: Spontaneous
  Country: US (occurrence: None)
  Receive Date: 20140414
  Receipt Date: 20140414
  Transmission Date: 20141212
  Serious: Yes (Other)
  Sender: FDA-Public Use
  Company Number: 2014P1002947

PATIENT
  Age: 68 Year
  Sex: Female

DRUGS (3)
  1. PREDNISONE [Suspect]
     Indication: MUSCLE SPASMS
  2. INSULIN ASPART [Concomitant]
  3. GLIMEPIRIDE [Concomitant]

REACTIONS (4)
  - Blood glucose increased [None]
  - Glycosylated haemoglobin increased [None]
  - Insulin C-peptide decreased [None]
  - Pancreatic disorder [None]
